FAERS Safety Report 9779926 (Version 1)
Quarter: 2013Q4

REPORT INFORMATION
  Report Type: Spontaneous
  Country: None (occurrence: US)
  Receive Date: 20131223
  Receipt Date: 20131223
  Transmission Date: 20140711
  Serious: Yes (Death, Hospitalization)
  Sender: FDA-Public Use
  Company Number: US-CUBIST PHARMACEUTICALS, INC.-2013CBST001393

PATIENT
  Sex: 0

DRUGS (5)
  1. CUBICIN [Suspect]
     Indication: OSTEOMYELITIS
     Dosage: 5.9 MG/KG, QD
     Route: 042
     Dates: start: 20131106, end: 20131126
  2. CUBICIN [Suspect]
     Indication: OFF LABEL USE
     Dosage: 500 MG, QD
     Route: 042
     Dates: start: 20131106, end: 20131126
  3. LORAZEPAM [Concomitant]
     Indication: ANXIETY
     Dosage: 2 MG, QD
     Route: 048
     Dates: start: 2008
  4. SEROQUEL [Concomitant]
     Indication: DEPRESSION
     Dosage: 200 MG, QD
     Route: 048
     Dates: start: 2008
  5. BLOOD PRESSURE MEDICATION (UNSPECIFIED) [Concomitant]
     Indication: HYPERTENSION
     Dosage: UNK
     Route: 048
     Dates: start: 2008

REACTIONS (2)
  - Death [Fatal]
  - Pneumonia [Unknown]
